FAERS Safety Report 6308262-0 (Version None)
Quarter: 2009Q3

REPORT INFORMATION
  Report Type: 
  Country: None (occurrence: None)
  Receive Date: 20090813
  Receipt Date: 20090714
  Transmission Date: 20100115
  Serious: No
  Sender: FDA-Public Use
  Company Number: US-BAYER-200912437BCC

PATIENT
  Age: 65 Year
  Sex: Female
  Weight: 84 kg

DRUGS (4)
  1. ALEVE [Suspect]
     Indication: ARTHRITIS
     Dosage: TOTAL DAILY DOSE: 220 MG  UNIT DOSE: 220 MG
     Route: 048
  2. CITRACAL PETITES [Suspect]
     Indication: VITAMIN SUPPLEMENTATION
     Dosage: 1 IN THE AFTERNOON, 1 AT NIGHT DAILY DURING THEWEEK, AND 1DF TID ON THE WEEKEND
     Route: 048
     Dates: start: 20090601, end: 20090713
  3. TYLENOL (CAPLET) [Concomitant]
     Route: 065
  4. SYNVISC [Concomitant]
     Dosage: TOTAL DAILY DOSE: 1 DF  UNIT DOSE: 1 DF
     Route: 065

REACTIONS (2)
  - BONE PAIN [None]
  - DYSPEPSIA [None]
